FAERS Safety Report 6348518-9 (Version None)
Quarter: 2009Q3

REPORT INFORMATION
  Report Type: 
  Country: None (occurrence: None)
  Receive Date: 20090911
  Receipt Date: 20090901
  Transmission Date: 20100115
  Serious: Yes (Other)
  Sender: FDA-Public Use
  Company Number: US-JNJFOC-20090901675

PATIENT
  Age: 24 Year
  Sex: Male
  Weight: 92.99 kg

DRUGS (1)
  1. TYLENOL COLD MULTI-SYMPTOM SEVERE DAYTIME COOL BURST [Suspect]
     Indication: NASOPHARYNGITIS
     Route: 048
     Dates: start: 20090828, end: 20090830

REACTIONS (2)
  - EXPIRED DRUG ADMINISTERED [None]
  - HYPERTENSION [None]
